FAERS Safety Report 18361779 (Version 3)
Quarter: 2021Q4

REPORT INFORMATION
  Report Type: Spontaneous
  Country: US (occurrence: None)
  Receive Date: 20201008
  Receipt Date: 20211125
  Transmission Date: 20220303
  Serious: Yes (Hospitalization, Other)
  Sender: FDA-Public Use
  Company Number: 2020SF27436

PATIENT
  Age: 16958 Day
  Sex: Female
  Weight: 106.6 kg

DRUGS (56)
  1. FARXIGA [Suspect]
     Active Substance: DAPAGLIFLOZIN PROPANEDIOL
     Indication: Type 2 diabetes mellitus
     Route: 048
     Dates: start: 20160222, end: 20170601
  2. FARXIGA [Suspect]
     Active Substance: DAPAGLIFLOZIN PROPANEDIOL
     Indication: Weight decreased
     Route: 048
     Dates: start: 20160222, end: 20170601
  3. FARXIGA [Suspect]
     Active Substance: DAPAGLIFLOZIN PROPANEDIOL
     Indication: Hypotension
     Route: 048
     Dates: start: 20160222, end: 20170601
  4. FARXIGA [Suspect]
     Active Substance: DAPAGLIFLOZIN PROPANEDIOL
     Indication: Type 2 diabetes mellitus
     Route: 048
     Dates: start: 20170106
  5. FARXIGA [Suspect]
     Active Substance: DAPAGLIFLOZIN PROPANEDIOL
     Indication: Weight decreased
     Route: 048
     Dates: start: 20170106
  6. FARXIGA [Suspect]
     Active Substance: DAPAGLIFLOZIN PROPANEDIOL
     Indication: Hypotension
     Route: 048
     Dates: start: 20170106
  7. FARXIGA [Suspect]
     Active Substance: DAPAGLIFLOZIN PROPANEDIOL
     Indication: Type 2 diabetes mellitus
     Dosage: GENERIC
     Route: 048
     Dates: start: 20160818
  8. FARXIGA [Suspect]
     Active Substance: DAPAGLIFLOZIN PROPANEDIOL
     Indication: Weight decreased
     Dosage: GENERIC
     Route: 048
     Dates: start: 20160818
  9. FARXIGA [Suspect]
     Active Substance: DAPAGLIFLOZIN PROPANEDIOL
     Indication: Hypotension
     Dosage: GENERIC
     Route: 048
     Dates: start: 20160818
  10. FARXIGA [Suspect]
     Active Substance: DAPAGLIFLOZIN PROPANEDIOL
     Indication: Type 2 diabetes mellitus
     Route: 048
     Dates: start: 20160215
  11. FARXIGA [Suspect]
     Active Substance: DAPAGLIFLOZIN PROPANEDIOL
     Indication: Weight decreased
     Route: 048
     Dates: start: 20160215
  12. FARXIGA [Suspect]
     Active Substance: DAPAGLIFLOZIN PROPANEDIOL
     Indication: Hypotension
     Route: 048
     Dates: start: 20160215
  13. GARAMYCIN [Concomitant]
     Active Substance: GENTAMICIN SULFATE
  14. FOLIC ACID [Concomitant]
     Active Substance: FOLIC ACID
     Dates: start: 20170323
  15. CARBOXYMETHYLCELLULOSE [Concomitant]
     Active Substance: CARBOXYMETHYLCELLULOSE
  16. PLAQUENIL [Concomitant]
     Active Substance: HYDROXYCHLOROQUINE SULFATE
  17. LAMICTAL [Concomitant]
     Active Substance: LAMOTRIGINE
  18. ZESTORETIC [Concomitant]
     Active Substance: HYDROCHLOROTHIAZIDE\LISINOPRIL
  19. FISH OIL [Concomitant]
     Active Substance: FISH OIL
  20. CLARITIN [Concomitant]
     Active Substance: LORATADINE
  21. METFORMIN [Concomitant]
     Active Substance: METFORMIN HYDROCHLORIDE
     Dates: start: 20170629
  22. PERCOCET [Concomitant]
     Active Substance: ACETAMINOPHEN\OXYCODONE HYDROCHLORIDE
     Dates: start: 20171110
  23. SALAGEN [Concomitant]
     Active Substance: PILOCARPINE HYDROCHLORIDE
  24. SERTRALINE [Concomitant]
     Active Substance: SERTRALINE HYDROCHLORIDE
     Dates: start: 20170918
  25. CYMBALTA [Concomitant]
     Active Substance: DULOXETINE HYDROCHLORIDE
     Dates: start: 20180118
  26. LANTUS [Concomitant]
     Active Substance: INSULIN GLARGINE
  27. ZOFRAN [Concomitant]
     Active Substance: ONDANSETRON HYDROCHLORIDE
  28. MORPHINE [Concomitant]
     Active Substance: MORPHINE
  29. NORCO [Concomitant]
     Active Substance: ACETAMINOPHEN\HYDROCODONE BITARTRATE
     Dates: start: 20171110
  30. FERROUS SULFATE [Concomitant]
     Active Substance: FERROUS SULFATE
  31. VICTOZA [Concomitant]
     Active Substance: LIRAGLUTIDE
     Dates: start: 20180703
  32. VITAMIN B12 [Concomitant]
     Active Substance: CYANOCOBALAMIN
  33. POTASSIUM CHLORIDE [Concomitant]
     Active Substance: POTASSIUM CHLORIDE
  34. PANTOPRAZOLE [Concomitant]
     Active Substance: PANTOPRAZOLE
  35. CLINDAMYCIN [Concomitant]
     Active Substance: CLINDAMYCIN
  36. VANCOMYCIN [Concomitant]
     Active Substance: VANCOMYCIN
  37. DAKIN [Concomitant]
  38. MEROPENEM [Concomitant]
     Active Substance: MEROPENEM
  39. MAGNESIUM SULFATE [Concomitant]
     Active Substance: MAGNESIUM SULFATE
  40. MUPIROCIN [Concomitant]
     Active Substance: MUPIROCIN
  41. MONODOX [Concomitant]
     Active Substance: DOXYCYCLINE
  42. ANECTINE [Concomitant]
     Active Substance: SUCCINYLCHOLINE CHLORIDE
  43. DIABETA [Concomitant]
     Active Substance: GLYBURIDE
  44. LOVENOX [Concomitant]
     Active Substance: ENOXAPARIN SODIUM
  45. ZEMURON [Concomitant]
     Active Substance: ROCURONIUM BROMIDE
  46. MIDAZOLAM [Concomitant]
     Active Substance: MIDAZOLAM
  47. LISINOPRIL [Concomitant]
     Active Substance: LISINOPRIL
     Dates: start: 20180118
  48. GLIPIZIDE [Concomitant]
     Active Substance: GLIPIZIDE
     Dates: start: 20180904
  49. XIGDUO XR [Concomitant]
     Active Substance: DAPAGLIFLOZIN PROPANEDIOL\METFORMIN HYDROCHLORIDE
     Dates: start: 20180904
  50. PILOCARPINE [Concomitant]
     Active Substance: PILOCARPINE
     Dates: start: 20161215
  51. GLYBURIDE [Concomitant]
     Active Substance: GLYBURIDE
     Dates: start: 20161215
  52. LISINOPRIL AND HYDROCHLOROTHIAZIDE [Concomitant]
     Active Substance: HYDROCHLOROTHIAZIDE\LISINOPRIL
     Dates: start: 20161215
  53. LAMOTRIGINE [Concomitant]
     Active Substance: LAMOTRIGINE
     Dates: start: 20161215
  54. ACETAMINOPHEN\HYDROCODONE BITARTRATE [Concomitant]
     Active Substance: ACETAMINOPHEN\HYDROCODONE BITARTRATE
     Indication: Pain
     Dates: start: 20161215
  55. ONDANSETRON [Concomitant]
     Active Substance: ONDANSETRON
     Indication: Nausea
     Dates: start: 20161215
  56. ACETAMINOPHEN\OXYCODONE HYDROCHLORIDE [Concomitant]
     Active Substance: ACETAMINOPHEN\OXYCODONE HYDROCHLORIDE
     Indication: Pain
     Dates: start: 20161215

REACTIONS (10)
  - Fournier^s gangrene [Unknown]
  - Perirectal abscess [Unknown]
  - Sepsis [Unknown]
  - Necrotising fasciitis [Unknown]
  - Abscess limb [Unknown]
  - Rectal abscess [Unknown]
  - Cellulitis [Unknown]
  - Scar [Unknown]
  - Nerve injury [Unknown]
  - Pain [Unknown]

NARRATIVE: CASE EVENT DATE: 20170506
